FAERS Safety Report 9110469 (Version 1)
Quarter: 2013Q1

REPORT INFORMATION
  Report Type: Spontaneous
  Country: US (occurrence: US)
  Receive Date: 20130219
  Receipt Date: 20130219
  Transmission Date: 20140127
  Serious: Yes (Life-Threatening, Hospitalization)
  Sender: FDA-Public Use
  Company Number: US-BRACCO-008902

PATIENT
  Age: 63 Year
  Sex: Male

DRUGS (2)
  1. ISOVUE 370 [Suspect]
     Indication: ANGIOGRAM
     Dates: start: 20121119, end: 20121119
  2. ISOVUE 370 [Suspect]
     Indication: CHRONIC OBSTRUCTIVE PULMONARY DISEASE
     Dates: start: 20121119, end: 20121119

REACTIONS (2)
  - Cardiac arrest [Recovering/Resolving]
  - Hypersensitivity [Recovering/Resolving]
